FAERS Safety Report 5694713-1 (Version None)
Quarter: 2008Q2

REPORT INFORMATION
  Report Type: 
  Country: None (occurrence: None)
  Receive Date: 20080404
  Receipt Date: 20080326
  Transmission Date: 20081010
  Serious: Yes (Hospitalization)
  Sender: FDA-Public Use
  Company Number: B0514534A

PATIENT
  Age: 78 Year
  Sex: Male
  Weight: 63.5 kg

DRUGS (10)
  1. AUGMENTIN '125' [Suspect]
     Dosage: 1G THREE TIMES PER DAY
     Route: 048
     Dates: start: 20080223, end: 20080229
  2. COLCHICINE HOUDE [Suspect]
     Dosage: 1MG PER DAY
     Route: 048
     Dates: start: 20080210, end: 20080225
  3. REVLIMID [Concomitant]
     Indication: DRUG USE FOR UNKNOWN INDICATION
     Dosage: 25MG PER DAY
     Route: 065
     Dates: start: 20080201, end: 20080218
  4. OFLOCET [Concomitant]
     Route: 065
     Dates: start: 20080205, end: 20080215
  5. COLCHIMAX [Concomitant]
     Dosage: 1MG PER DAY
     Route: 065
     Dates: start: 20080201, end: 20080201
  6. DURAGESIC-100 [Concomitant]
     Indication: PAIN
     Dosage: 5MG EVERY 3 DAYS
     Route: 061
  7. LYRICA [Concomitant]
     Indication: PAIN
     Dosage: 25MG PER DAY
     Route: 065
  8. ZECLAR [Concomitant]
     Dosage: 500MG THREE TIMES PER DAY
     Route: 065
     Dates: start: 20080223, end: 20080229
  9. INIPOMP [Concomitant]
     Dosage: 40MG TWICE PER DAY
     Route: 065
     Dates: start: 20080223, end: 20080229
  10. WARFARIN SODIUM [Concomitant]
     Route: 065
     Dates: start: 20080201

REACTIONS (6)
  - ALANINE AMINOTRANSFERASE INCREASED [None]
  - ASPARTATE AMINOTRANSFERASE INCREASED [None]
  - BLOOD ALKALINE PHOSPHATASE INCREASED [None]
  - DIARRHOEA [None]
  - GAMMA-GLUTAMYLTRANSFERASE INCREASED [None]
  - HEPATITIS CHOLESTATIC [None]
